FAERS Safety Report 8139973-2 (Version None)
Quarter: 2012Q1

REPORT INFORMATION
  Report Type: 
  Country: None (occurrence: None)
  Receive Date: 20120215
  Receipt Date: 20120206
  Transmission Date: 20120608
  Serious: Yes (Hospitalization)
  Sender: FDA-Public Use
  Company Number: FR-ASTRAZENECA-2012SE09292

PATIENT
  Age: 43 Year
  Sex: Female

DRUGS (4)
  1. TEMAZEPAM [Suspect]
     Route: 048
     Dates: start: 20120110
  2. QUETIAPINE FUMARATE [Suspect]
     Route: 048
     Dates: start: 20111208
  3. MARSILID PHOSPHATE TAB [Suspect]
     Route: 048
     Dates: start: 20111216, end: 20120112
  4. TRAMADOL HCL [Suspect]
     Route: 048
     Dates: start: 20110110

REACTIONS (1)
  - CHOLESTASIS [None]
